FAERS Safety Report 11842058 (Version 1)
Quarter: 2015Q4

REPORT INFORMATION
  Report Type: Spontaneous
  Country: US (occurrence: US)
  Receive Date: 20151216
  Receipt Date: 20151216
  Transmission Date: 20160305
  Serious: No
  Sender: FDA-Public Use
  Company Number: US-RB-073026-15

PATIENT
  Age: 90 Year
  Sex: Female

DRUGS (1)
  1. DELSYM [Suspect]
     Active Substance: DEXTROMETHORPHAN
     Indication: COUGH
     Dosage: 5ML. TOOK 2 TABLE SPOON ON 29-JAN-2015 AND 1 TABLESPOON ON 30-JAN-2015 TOOK PRODUCT LAST ON 30-JAN-2
     Route: 065
     Dates: start: 20150129

REACTIONS (1)
  - Headache [Not Recovered/Not Resolved]

NARRATIVE: CASE EVENT DATE: 20150130
